FAERS Safety Report 14897661 (Version 1)
Quarter: 2018Q2

REPORT INFORMATION
  Report Type: Spontaneous
  Country: US (occurrence: US)
  Receive Date: 20180515
  Receipt Date: 20180515
  Transmission Date: 20180711
  Serious: Yes (Other)
  Sender: FDA-Public Use
  Company Number: US-ASTRAZENECA-2018SE61545

PATIENT
  Sex: Female
  Weight: 88.9 kg

DRUGS (3)
  1. NOVOLOG [Concomitant]
     Active Substance: INSULIN ASPART
     Dosage: UNKNOWN
     Route: 065
  2. BYDUREON [Suspect]
     Active Substance: EXENATIDE
     Route: 065
  3. LEVEMIR [Concomitant]
     Active Substance: INSULIN DETEMIR
     Dosage: UNKNOWN
     Route: 065

REACTIONS (9)
  - Blood glucose increased [Unknown]
  - Coronary artery stenosis [Unknown]
  - Drug ineffective [Unknown]
  - Herpes zoster [Unknown]
  - Diabetes mellitus [Unknown]
  - Abdominal discomfort [Unknown]
  - Coronary artery occlusion [Unknown]
  - Blood cholesterol abnormal [Unknown]
  - Drug hypersensitivity [Unknown]
